FAERS Safety Report 8547612-1 (Version None)
Quarter: 2012Q3

REPORT INFORMATION
  Report Type: 
  Country: None (occurrence: None)
  Receive Date: 20120727
  Receipt Date: 20120320
  Transmission Date: 20120928
  Serious: Yes (Other)
  Sender: FDA-Public Use
  Company Number: US-ASTRAZENECA-2012SE19278

PATIENT
  Age: 27 Year
  Sex: Male

DRUGS (4)
  1. SEROQUEL [Suspect]
     Indication: PARANOIA
     Route: 048
  2. DEPAKOTE [Suspect]
     Route: 065
  3. XANAX [Concomitant]
  4. SEROQUEL [Suspect]
     Indication: BIPOLAR DISORDER
     Route: 048

REACTIONS (8)
  - WRONG TECHNIQUE IN DRUG USAGE PROCESS [None]
  - SUICIDAL IDEATION [None]
  - PARANOIA [None]
  - ADJUSTMENT DISORDER WITH ANXIETY [None]
  - DEPRESSED MOOD [None]
  - HYPOAESTHESIA [None]
  - ANXIETY [None]
  - HEAD DISCOMFORT [None]
